FAERS Safety Report 14479387 (Version 2)
Quarter: 2018Q2

REPORT INFORMATION
  Report Type: Other
  Country: CA (occurrence: CA)
  Receive Date: 20180202
  Receipt Date: 20180422
  Transmission Date: 20180711
  Serious: Yes (Other)
  Sender: FDA-Public Use
  Company Number: CA-APOTEX-2018AP006126

PATIENT
  Sex: Female

DRUGS (2)
  1. LORAZEPAM. [Concomitant]
     Active Substance: LORAZEPAM
     Indication: PRODUCT USED FOR UNKNOWN INDICATION
     Dosage: UNK
     Route: 065
  2. ESCITALOPRAM [Suspect]
     Active Substance: ESCITALOPRAM OXALATE
     Indication: ANXIETY
     Dosage: 10 MG, UNK
     Route: 065

REACTIONS (8)
  - Somnolence [Unknown]
  - Vision blurred [Unknown]
  - Confusional state [Unknown]
  - Anxiety [Unknown]
  - Insomnia [Unknown]
  - Altered state of consciousness [Unknown]
  - Pain in jaw [Unknown]
  - Speech disorder [Unknown]
